FAERS Safety Report 4324957-2 (Version None)
Quarter: 2004Q1

REPORT INFORMATION
  Report Type: 
  Country: None (occurrence: None)
  Receive Date: 20040323
  Receipt Date: 20040309
  Transmission Date: 20041129
  Serious: Yes (Hospitalization)
  Sender: FDA-Public Use
  Company Number: 04P-028-0251865-00

PATIENT
  Age: 15 Year
  Sex: Male
  Weight: 48.9 kg

DRUGS (7)
  1. ULTANE [Suspect]
     Indication: ANAESTHESIA
     Dosage: INHALATION
     Route: 055
     Dates: start: 20040226, end: 20040226
  2. ATRACURIUM BESYLATE [Concomitant]
  3. ATROPINE [Concomitant]
  4. EDROPHONIUM CHLORIDE [Concomitant]
  5. ONDANSETRON HCL [Concomitant]
  6. PROPOFOL [Concomitant]
  7. VALPROATE SEMISODIUM [Concomitant]

REACTIONS (5)
  - BRONCHOSPASM [None]
  - COUGH [None]
  - CREPITATIONS [None]
  - HAEMOPTYSIS [None]
  - PULMONARY OEDEMA [None]
